FAERS Safety Report 12700029 (Version 5)
Quarter: 2018Q2

REPORT INFORMATION
  Report Type: Report from Study
  Country: BR (occurrence: BR)
  Receive Date: 20160830
  Receipt Date: 20180607
  Transmission Date: 20180711
  Serious: Yes (Hospitalization)
  Sender: FDA-Public Use
  Company Number: BR-JNJFOC-20160822875

PATIENT
  Sex: Female

DRUGS (8)
  1. REMICADE [Suspect]
     Active Substance: INFLIXIMAB
     Indication: RHEUMATOID ARTHRITIS
     Route: 042
     Dates: start: 20131023
  2. VELAXIN [Concomitant]
     Route: 065
  3. REMICADE [Suspect]
     Active Substance: INFLIXIMAB
     Indication: RHEUMATOID ARTHRITIS
     Route: 042
     Dates: start: 20180327
  4. REMICADE [Suspect]
     Active Substance: INFLIXIMAB
     Indication: RHEUMATOID ARTHRITIS
     Route: 042
  5. TOPIRAMATE. [Concomitant]
     Active Substance: TOPIRAMATE
     Route: 065
  6. HIDROSMIN [Concomitant]
     Active Substance: HIDROSMIN
     Route: 065
  7. PRAMIPEZAN [Concomitant]
     Route: 065
  8. VELAXIN [Concomitant]
     Route: 065

REACTIONS (3)
  - Pituitary tumour [Recovered/Resolved]
  - Thyroid disorder [Recovering/Resolving]
  - Depression [Not Recovered/Not Resolved]

NARRATIVE: CASE EVENT DATE: 2014
